FAERS Safety Report 6370978-8 (Version None)
Quarter: 2009Q3

REPORT INFORMATION
  Report Type: 
  Country: None (occurrence: None)
  Receive Date: 20090923
  Receipt Date: 20090915
  Transmission Date: 20100115
  Serious: Yes (Disabling)
  Sender: FDA-Public Use
  Company Number: NZ-ABBOTT-09P-118-0597305-00

PATIENT
  Sex: Male

DRUGS (3)
  1. EPILIM TABLETS [Suspect]
     Indication: DRUG USE FOR UNKNOWN INDICATION
     Route: 048
  2. TRIMETHOPRIM [Concomitant]
     Indication: PROPHYLAXIS URINARY TRACT INFECTION
     Route: 048
  3. NORFLOXACIN [Concomitant]
     Indication: URINARY TRACT INFECTION
     Route: 048

REACTIONS (3)
  - DRUG INEFFECTIVE [None]
  - INDIFFERENCE [None]
  - PRODUCT SUBSTITUTION ISSUE [None]
